FAERS Safety Report 9386903 (Version 2)
Quarter: 2013Q3

REPORT INFORMATION
  Report Type: Spontaneous
  Country: US (occurrence: US)
  Receive Date: 20130708
  Receipt Date: 20130816
  Transmission Date: 20140515
  Serious: Yes (Hospitalization)
  Sender: FDA-Public Use
  Company Number: US-009507513-1307USA000927

PATIENT
  Sex: Female

DRUGS (10)
  1. PEGINTRON [Suspect]
     Indication: HEPATITIS C
     Dosage: STRENGTH: 80 MCG/0.5 ML, 1 STANDART DOSE OF 1, ONCE A WEEK
     Route: 058
     Dates: start: 20130510, end: 20130616
  2. REBETOL [Suspect]
     Dosage: UNK
     Route: 048
     Dates: start: 20130510, end: 20130616
  3. POTASSIUM CHLORIDE [Concomitant]
     Route: 048
  4. PEPCID [Concomitant]
  5. NORVASC [Concomitant]
  6. NEURONTIN [Concomitant]
  7. ATENOLOL [Concomitant]
  8. FERROUS SULFATE [Concomitant]
  9. PLAVIX [Concomitant]
  10. ASPIRIN [Concomitant]

REACTIONS (1)
  - Malaise [Unknown]
